FAERS Safety Report 7331921-8 (Version None)
Quarter: 2011Q1

REPORT INFORMATION
  Report Type: 
  Country: None (occurrence: None)
  Receive Date: 20110304
  Receipt Date: 20100311
  Transmission Date: 20110831
  Serious: No
  Sender: FDA-Public Use
  Company Number: US-PFIZER INC-2010032583

PATIENT
  Sex: Female
  Weight: 63.492 kg

DRUGS (2)
  1. DILANTIN [Suspect]
     Dosage: 300 MG, 1X/DAY
     Route: 048
     Dates: start: 20100304
  2. ARICEPT [Concomitant]
     Dosage: UNK

REACTIONS (1)
  - SOMNOLENCE [None]
